FAERS Safety Report 16040358 (Version 17)
Quarter: 2019Q4

REPORT INFORMATION
  Report Type: Report from Study
  Country: CA (occurrence: CA)
  Receive Date: 20190306
  Receipt Date: 20191018
  Transmission Date: 20200122
  Serious: Yes (Other)
  Sender: FDA-Public Use
  Company Number: CA-BRISTOL-MYERS SQUIBB COMPANY-BMS-2018-119593

PATIENT
  Age: 60 Year
  Sex: Female

DRUGS (13)
  1. CALCIUM [Concomitant]
     Active Substance: CALCIUM
     Indication: PRODUCT USED FOR UNKNOWN INDICATION
     Route: 005
  2. METHYLPHENIDATE. [Concomitant]
     Active Substance: METHYLPHENIDATE
     Indication: PRODUCT USED FOR UNKNOWN INDICATION
     Route: 065
  3. ZOPICLONE [Concomitant]
     Active Substance: ZOPICLONE
     Indication: PRODUCT USED FOR UNKNOWN INDICATION
     Route: 065
  4. TRAMADOL. [Concomitant]
     Active Substance: TRAMADOL
     Indication: PRODUCT USED FOR UNKNOWN INDICATION
     Route: 065
  5. SULFINPYRAZONE [Concomitant]
     Active Substance: SULFINPYRAZONE
     Indication: PRODUCT USED FOR UNKNOWN INDICATION
     Route: 065
  6. ACETAMINOPHENE [Concomitant]
     Active Substance: ACETAMINOPHEN
     Indication: PRODUCT USED FOR UNKNOWN INDICATION
     Route: 065
  7. TENORMIN [Concomitant]
     Active Substance: ATENOLOL
     Indication: PRODUCT USED FOR UNKNOWN INDICATION
     Route: 065
  8. RITALIN [Concomitant]
     Active Substance: METHYLPHENIDATE HYDROCHLORIDE
     Indication: PRODUCT USED FOR UNKNOWN INDICATION
     Dosage: UNK, PRN
     Route: 065
  9. ELAVIL [Suspect]
     Active Substance: AMITRIPTYLINE HYDROCHLORIDE
     Indication: PRODUCT USED FOR UNKNOWN INDICATION
     Route: 065
  10. NEURONTIN [Concomitant]
     Active Substance: GABAPENTIN
     Indication: PRODUCT USED FOR UNKNOWN INDICATION
     Route: 065
  11. VITAMIN D                          /00107901/ [Concomitant]
     Active Substance: ERGOCALCIFEROL
     Indication: PRODUCT USED FOR UNKNOWN INDICATION
     Route: 065
  12. PANTOLOC                           /01263201/ [Concomitant]
     Active Substance: PANTOPRAZOLE SODIUM
     Indication: PRODUCT USED FOR UNKNOWN INDICATION
     Route: 065
  13. NIVOLUMAB [Suspect]
     Active Substance: NIVOLUMAB
     Indication: MALIGNANT MELANOMA
     Dosage: 240 MILLIGRAM, Q2WK
     Route: 042
     Dates: start: 20181204

REACTIONS (38)
  - Blood phosphorus decreased [Unknown]
  - Platelet aggregation [Unknown]
  - Eosinophil count increased [Unknown]
  - Somnolence [Recovering/Resolving]
  - Blood albumin decreased [Unknown]
  - Tryptase increased [Unknown]
  - Blood alkaline phosphatase increased [Unknown]
  - Arthralgia [Recovered/Resolved]
  - Intracranial mass [Unknown]
  - Fatigue [Recovering/Resolving]
  - Diarrhoea [Unknown]
  - Bronchitis [Recovering/Resolving]
  - Blood thyroid stimulating hormone decreased [Unknown]
  - Nausea [Recovered/Resolved]
  - Basophil count increased [Unknown]
  - Insomnia [Not Recovered/Not Resolved]
  - Dizziness [Recovered/Resolved]
  - Cough [Recovering/Resolving]
  - Blood pH increased [Unknown]
  - Arthropathy [Unknown]
  - Dyspnoea [Unknown]
  - Influenza [Unknown]
  - Appetite disorder [Recovering/Resolving]
  - Platelet count decreased [Unknown]
  - Pain [Not Recovered/Not Resolved]
  - Dry mouth [Not Recovered/Not Resolved]
  - Oropharyngeal pain [Not Recovered/Not Resolved]
  - Lymphadenopathy [Not Recovered/Not Resolved]
  - Erythema [Unknown]
  - Mean cell haemoglobin concentration decreased [Unknown]
  - Respiratory tract infection [Unknown]
  - Blood thyroid stimulating hormone increased [Unknown]
  - Malaise [Not Recovered/Not Resolved]
  - Lipase decreased [Unknown]
  - Vomiting [Recovered/Resolved]
  - Thyroid disorder [Unknown]
  - Gastroenteritis [Unknown]
  - Haematocrit increased [Unknown]

NARRATIVE: CASE EVENT DATE: 20181204
